FAERS Safety Report 8195356-0 (Version None)
Quarter: 2012Q1

REPORT INFORMATION
  Report Type: 
  Country: None (occurrence: None)
  Receive Date: 20120308
  Receipt Date: 20120301
  Transmission Date: 20120608
  Serious: Yes (Other)
  Sender: FDA-Public Use
  Company Number: US-GLAXOSMITHKLINE-A0968227A

PATIENT
  Age: 7 Year
  Sex: Male

DRUGS (3)
  1. LAMICTAL [Suspect]
     Indication: CONVULSION
     Dosage: 12.5MG PER DAY
     Route: 048
     Dates: start: 20120201
  2. NEURONTIN [Concomitant]
  3. THYROID MEDICATION [Concomitant]

REACTIONS (8)
  - RASH PRURITIC [None]
  - RASH [None]
  - ORAL PAIN [None]
  - ORAL MUCOSAL DISCOLOURATION [None]
  - OROPHARYNGEAL BLISTERING [None]
  - CONDITION AGGRAVATED [None]
  - AUTISM [None]
  - PSYCHOMOTOR HYPERACTIVITY [None]
